FAERS Safety Report 25064234 (Version 7)
Quarter: 2025Q2

REPORT INFORMATION
  Report Type: Spontaneous
  Country: CA (occurrence: CA)
  Receive Date: 20250311
  Receipt Date: 20250520
  Transmission Date: 20250716
  Serious: Yes (Other)
  Sender: PFIZER
  Company Number: CA-PFIZER INC-202500051753

PATIENT
  Age: 66 Year
  Sex: Male

DRUGS (13)
  1. RUXIENCE [Suspect]
     Active Substance: RITUXIMAB-PVVR
     Indication: Granulomatosis with polyangiitis
     Dosage: 1 DF, WEEKLY, 847.5 MG WEEKLY FOR 4 WEEKS
     Route: 042
     Dates: start: 20210715
  2. RUXIENCE [Suspect]
     Active Substance: RITUXIMAB-PVVR
     Route: 042
     Dates: start: 20210804
  3. RUXIENCE [Suspect]
     Active Substance: RITUXIMAB-PVVR
     Dosage: 800 MG WEEKLY FOR 4 WEEKS (1DF)
     Route: 042
     Dates: start: 20250327
  4. RUXIENCE [Suspect]
     Active Substance: RITUXIMAB-PVVR
     Dosage: 800 MG WEEKLY FOR 4 WEEKS
     Route: 042
     Dates: start: 20250410
  5. RUXIENCE [Suspect]
     Active Substance: RITUXIMAB-PVVR
     Dosage: 800 MG WEEKLY FOR 4 WEEKS
     Route: 042
     Dates: start: 20250410
  6. RUXIENCE [Suspect]
     Active Substance: RITUXIMAB-PVVR
     Route: 042
     Dates: start: 20250515
  7. RUXIENCE [Suspect]
     Active Substance: RITUXIMAB-PVVR
     Route: 042
     Dates: start: 20250515
  8. ATORVASTATIN [Concomitant]
     Active Substance: ATORVASTATIN
     Route: 065
  9. GLICLAZIDE [Concomitant]
     Active Substance: GLICLAZIDE
     Route: 065
  10. JANUVIA [Concomitant]
     Active Substance: SITAGLIPTIN PHOSPHATE
     Route: 065
  11. PREDNISONE [Concomitant]
     Active Substance: PREDNISONE
  12. RAMIPRIL [Concomitant]
     Active Substance: RAMIPRIL
     Route: 065
  13. XARELTO [Concomitant]
     Active Substance: RIVAROXABAN

REACTIONS (6)
  - Tooth extraction [Unknown]
  - Tooth disorder [Unknown]
  - Neoplasm malignant [Unknown]
  - Post procedural swelling [Not Recovered/Not Resolved]
  - Impaired healing [Unknown]
  - Off label use [Unknown]
